FAERS Safety Report 6170543-1 (Version None)
Quarter: 2009Q2

REPORT INFORMATION
  Report Type: 
  Country: None (occurrence: None)
  Receive Date: 20090428
  Receipt Date: 20090416
  Transmission Date: 20091009
  Serious: Yes (Hospitalization, Other)
  Sender: FDA-Public Use
  Company Number: CA-ELI_LILLY_AND_COMPANY-CA200806000831

PATIENT
  Age: 63 Year
  Sex: Male

DRUGS (12)
  1. FORTEO [Suspect]
     Indication: OSTEOPOROSIS
     Dosage: 20 UG, DAILY (1/D)
     Dates: start: 20080408, end: 20080601
  2. FORTEO [Suspect]
     Dosage: UNK, UNK
     Dates: start: 20080601, end: 20090310
  3. ASPIRIN [Concomitant]
  4. FOLIC ACID [Concomitant]
  5. VASOTEC [Concomitant]
  6. METOPROLOL SUCCINATE [Concomitant]
  7. HYDROXYCHLOROQUINE SULFATE [Concomitant]
  8. SIMVASTATIN [Concomitant]
  9. METHOTREXATE [Concomitant]
  10. MELOXICAM [Concomitant]
  11. PREDNISONE TAB [Concomitant]
  12. TYLENOL WITH CODEIN #3 [Concomitant]

REACTIONS (1)
  - THROMBOSIS [None]
